FAERS Safety Report 19622486 (Version 1)
Quarter: 2021Q3

REPORT INFORMATION
  Report Type: Report from Study
  Country: CA (occurrence: CA)
  Receive Date: 20210728
  Receipt Date: 20210728
  Transmission Date: 20211014
  Serious: Yes (Other)
  Sender: FDA-Public Use
  Company Number: CA-ACCORD-233225

PATIENT
  Age: 62 Year
  Sex: Female

DRUGS (3)
  1. DESOXIMETASONE. [Concomitant]
     Active Substance: DESOXIMETASONE
  2. METHOTREXATE. [Suspect]
     Active Substance: METHOTREXATE
     Indication: PRODUCT USED FOR UNKNOWN INDICATION
  3. STELARA [Suspect]
     Active Substance: USTEKINUMAB
     Indication: PSORIATIC ARTHROPATHY
     Route: 058

REACTIONS (3)
  - Hepatic enzyme increased [Unknown]
  - Abdominal pain upper [Unknown]
  - Urinary tract infection bacterial [Unknown]
